FAERS Safety Report 25228630 (Version 4)
Quarter: 2025Q2

REPORT INFORMATION
  Report Type: Report from Study
  Country: US (occurrence: US)
  Receive Date: 20250423
  Receipt Date: 20250523
  Transmission Date: 20250716
  Serious: No
  Sender: ACADIA PHARMACEUTICALS
  Company Number: US-ACADIA PHARMACEUTICALS INC.-ACA-2025-PIM-004461

PATIENT
  Sex: Male

DRUGS (3)
  1. NUPLAZID [Suspect]
     Active Substance: PIMAVANSERIN TARTRATE
     Indication: Parkinson^s disease psychosis
     Dosage: 34 MILLIGRAM, QD
     Route: 048
  2. MEMANTINE [Concomitant]
     Active Substance: MEMANTINE
     Indication: Dementia
  3. MEMANTINE [Concomitant]
     Active Substance: MEMANTINE
     Indication: Parkinson^s disease

REACTIONS (5)
  - Memory impairment [Recovered/Resolved]
  - Memory impairment [Not Recovered/Not Resolved]
  - Speech disorder [Unknown]
  - Confusional state [Not Recovered/Not Resolved]
  - Product distribution issue [Not Recovered/Not Resolved]
